FAERS Safety Report 24254871 (Version 1)
Quarter: 2024Q3

REPORT INFORMATION
  Report Type: Spontaneous
  Country: US (occurrence: None)
  Receive Date: 20240826
  Receipt Date: 20240826
  Transmission Date: 20241016
  Serious: Yes (Disabling)
  Sender: Public
  Company Number: None

PATIENT
  Age: 61 Year
  Sex: Female
  Weight: 54.9 kg

DRUGS (4)
  1. QULIPTA [Suspect]
     Active Substance: ATOGEPANT
     Indication: Migraine prophylaxis
     Dosage: 30 TABLETS DAILY ORAL
     Route: 048
     Dates: start: 20220519, end: 20240823
  2. ELETRIPTAN [Concomitant]
     Active Substance: ELETRIPTAN
  3. DULOXETINE [Concomitant]
     Active Substance: DULOXETINE
  4. MULTI-VITAMIN [Concomitant]
     Active Substance: .ALPHA.-TOCOPHEROL ACETATE, DL-\ASCORBIC ACID\CYANOCOBALAMIN\FLUORIDE ION\FOLIC ACID\NIACIN\PYRIDOXI

REACTIONS (3)
  - Fibromyalgia [None]
  - Palpitations [None]
  - Sinusitis [None]

NARRATIVE: CASE EVENT DATE: 20220519
